FAERS Safety Report 8817568 (Version 1)
Quarter: 2012Q4

REPORT INFORMATION
  Report Type: 
  Country: US (occurrence: US)
  Receive Date: 20121001
  Receipt Date: 20121001
  Transmission Date: 20130627
  Serious: No
  Sender: FDA-Public Use
  Company Number: US-MUTUAL PHARMACEUTICAL COMPANY, INC.-CLND20120003

PATIENT
  Age: 69 Year
  Sex: Female
  Weight: 77.18 kg

DRUGS (3)
  1. CLONIDINE HYDROCHLORIDE TABLETS 0.1 MG [Suspect]
     Indication: BLOOD PRESSURE HIGH
     Route: 048
     Dates: start: 20120330, end: 20120419
  2. CLONIDINE HYDROCHLORIDE TABLETS 0.1 MG [Suspect]
     Route: 048
     Dates: start: 20120423, end: 20120423
  3. LOSARTAN/HCTZ 100/25 [Concomitant]
     Indication: HYPERTENSION
     Route: 048

REACTIONS (2)
  - Wheezing [Recovered/Resolved]
  - Product formulation issue [None]
